FAERS Safety Report 9160379 (Version 1)
Quarter: 2013Q1

REPORT INFORMATION
  Report Type: Spontaneous
  Country: JP (occurrence: JP)
  Receive Date: 20130313
  Receipt Date: 20130313
  Transmission Date: 20140127
  Serious: Yes (Other)
  Sender: FDA-Public Use
  Company Number: JP-GENZYME-THYM-1003694

PATIENT
  Age: 36 Year
  Sex: Male

DRUGS (14)
  1. THYMOGLOBULINE [Suspect]
     Indication: APLASTIC ANAEMIA
     Dosage: UNK
     Route: 065
  2. FLUDARA [Suspect]
     Indication: BONE MARROW CONDITIONING REGIMEN
     Dosage: 16 MG/KG, UNK
     Route: 065
  3. FLUDARA [Suspect]
     Dosage: UNK
     Route: 065
     Dates: start: 2011, end: 2011
  4. FLUDARA [Suspect]
     Dosage: UNK
     Route: 065
     Dates: start: 2011, end: 2011
  5. BUSULFAN [Concomitant]
     Indication: BONE MARROW CONDITIONING REGIMEN
     Dosage: 16 MG/KG, UNK
     Route: 065
  6. TACROLIMUS [Concomitant]
     Indication: PROPHYLAXIS AGAINST GRAFT VERSUS HOST DISEASE
     Dosage: UNK
     Route: 065
  7. TACROLIMUS [Concomitant]
     Dosage: UNK
     Route: 065
     Dates: start: 2011, end: 2011
  8. TACROLIMUS [Concomitant]
     Dosage: UNK
     Route: 065
     Dates: start: 2011, end: 2011
  9. METHOTREXATE [Concomitant]
     Indication: PROPHYLAXIS AGAINST GRAFT VERSUS HOST DISEASE
     Dosage: UNK
     Route: 065
  10. METHOTREXATE [Concomitant]
     Dosage: UNK
     Route: 065
     Dates: start: 2011, end: 2011
  11. CYCLOPHOSPHAMIDE [Concomitant]
     Indication: BONE MARROW CONDITIONING REGIMEN
     Dosage: UNK
     Route: 065
     Dates: start: 2011
  12. CYCLOPHOSPHAMIDE [Concomitant]
     Dosage: UNK
     Route: 065
     Dates: start: 2011, end: 2011
  13. TOTAL BODY IRRADIATION [Concomitant]
     Indication: BONE MARROW CONDITIONING REGIMEN
     Dosage: 2 GY, UNK
     Route: 065
     Dates: start: 2011
  14. MYCOPHENOLATE MOFETIL [Concomitant]
     Indication: PROPHYLAXIS AGAINST GRAFT VERSUS HOST DISEASE
     Dosage: UNK
     Route: 065
     Dates: start: 2011, end: 2011

REACTIONS (2)
  - Thrombotic microangiopathy [Unknown]
  - Posterior reversible encephalopathy syndrome [Not Recovered/Not Resolved]
